FAERS Safety Report 9668851 (Version 3)
Quarter: 2014Q1

REPORT INFORMATION
  Report Type: Spontaneous
  Country: JP (occurrence: JP)
  Receive Date: 20131105
  Receipt Date: 20140313
  Transmission Date: 20141002
  Serious: Yes (Other)
  Sender: FDA-Public Use
  Company Number: PHHY2013JP124311

PATIENT
  Age: 70 Year
  Sex: 0

DRUGS (1)
  1. ZOMETA [Suspect]
     Indication: METASTASES TO BONE
     Dates: start: 200608

REACTIONS (3)
  - Osteonecrosis of jaw [Recovered/Resolved]
  - Device breakage [Unknown]
  - Exposed bone in jaw [Unknown]
